FAERS Safety Report 12203015 (Version 1)
Quarter: 2016Q1

REPORT INFORMATION
  Report Type: Spontaneous
  Country: US (occurrence: US)
  Receive Date: 20160323
  Receipt Date: 20160323
  Transmission Date: 20160526
  Serious: No
  Sender: FDA-Public Use
  Company Number: US-AMGEN-USASP2016035289

PATIENT
  Age: 56 Year
  Sex: Female

DRUGS (1)
  1. ENBREL [Suspect]
     Active Substance: ETANERCEPT
     Indication: ANKYLOSING SPONDYLITIS
     Dosage: 50 MG, QWK
     Route: 058
     Dates: start: 2015, end: 20160306

REACTIONS (6)
  - Injection site pruritus [Unknown]
  - Injection site erythema [Unknown]
  - Peripheral swelling [Recovered/Resolved]
  - Injection site swelling [Unknown]
  - Joint swelling [Recovered/Resolved]
  - Injection site warmth [Unknown]

NARRATIVE: CASE EVENT DATE: 20160228
